FAERS Safety Report 17015492 (Version 4)
Quarter: 2020Q1

REPORT INFORMATION
  Report Type: Spontaneous
  Country: JP (occurrence: JP)
  Receive Date: 20191111
  Receipt Date: 20200228
  Transmission Date: 20200409
  Serious: Yes (Life-Threatening, Hospitalization)
  Sender: FDA-Public Use
  Company Number: JP-UCBSA-2019046567

PATIENT
  Age: 70 Year
  Sex: Female
  Weight: 54 kg

DRUGS (13)
  1. VIMPAT [Suspect]
     Active Substance: LACOSAMIDE
     Indication: STATUS EPILEPTICUS
     Dosage: 200 MILLIGRAM, 2X/DAY (BID)
     Route: 041
     Dates: start: 20191027, end: 20191030
  2. TAKEPRON [Concomitant]
     Active Substance: LANSOPRAZOLE
     Indication: GASTRITIS PROPHYLAXIS
     Dosage: 30 MILLIGRAM, 2X/DAY (BID)
     Route: 042
     Dates: start: 20191024, end: 20191031
  3. INOVAN [DOPAMINE HYDROCHLORIDE] [Concomitant]
     Indication: SINUS NODE DYSFUNCTION
     Dosage: UNK
  4. VIMPAT [Suspect]
     Active Substance: LACOSAMIDE
     Indication: OFF LABEL USE
  5. VANCOMYCIN HYDROCHLORIDE. [Concomitant]
     Active Substance: VANCOMYCIN HYDROCHLORIDE
     Indication: URINARY TRACT INFECTION
     Dosage: UNK
  6. VIMPAT [Concomitant]
     Active Substance: LACOSAMIDE
     Indication: STATUS EPILEPTICUS
     Dosage: 100 MILLIGRAM, 2X/DAY (BID)
     Route: 048
     Dates: start: 20191027, end: 20191030
  7. E KEPPRA [Concomitant]
     Active Substance: LEVETIRACETAM
     Indication: STATUS EPILEPTICUS
     Dosage: 1500 MILLIGRAM, 2X/DAY (BID)
     Route: 048
     Dates: start: 20191023, end: 20191030
  8. E KEPPRA [Concomitant]
     Active Substance: LEVETIRACETAM
     Indication: STATUS EPILEPTICUS
     Dosage: 1500 MILLIGRAM, 2X/DAY (BID)
     Route: 048
     Dates: start: 20191023, end: 20191030
  9. CLENAFIN [Concomitant]
     Active Substance: EFINACONAZOLE
     Indication: PRODUCT USED FOR UNKNOWN INDICATION
     Dosage: UNK
  10. NORADRENALINE [NOREPINEPHRINE] [Concomitant]
     Active Substance: NOREPINEPHRINE
     Indication: PRODUCT USED FOR UNKNOWN INDICATION
     Dosage: UNK
  11. HEPARIN CALCIUM [Concomitant]
     Active Substance: HEPARIN CALCIUM
     Indication: THROMBOSIS PROPHYLAXIS
     Dosage: 5 INTERNATIONAL UNIT
     Route: 058
     Dates: start: 20191024, end: 20191031
  12. FYCOMPA [Concomitant]
     Active Substance: PERAMPANEL
     Indication: STATUS EPILEPTICUS
     Dosage: 2 MILLIGRAM, ONCE DAILY (QD)
     Route: 048
  13. FENTANYL. [Concomitant]
     Active Substance: FENTANYL
     Indication: ANALGESIC THERAPY
     Dosage: 0.5 MILLILITER, HOURLY
     Route: 042
     Dates: start: 20191025, end: 20191030

REACTIONS (4)
  - Arrhythmia [Unknown]
  - Bradycardia [Recovered/Resolved]
  - Off label use [Unknown]
  - Sinus arrest [Unknown]

NARRATIVE: CASE EVENT DATE: 20191027
